FAERS Safety Report 7040292-6 (Version None)
Quarter: 2010Q4

REPORT INFORMATION
  Report Type: 
  Country: None (occurrence: None)
  Receive Date: 20101012
  Receipt Date: 20100929
  Transmission Date: 20110411
  Serious: Yes (Death, Other)
  Sender: FDA-Public Use
  Company Number: JP-PFIZER INC-2010123322

PATIENT
  Sex: Male

DRUGS (5)
  1. VIAGRA [Suspect]
     Dosage: UNK
     Route: 048
  2. DEPAS [Suspect]
     Dosage: UNK
  3. BROMAZEPAM [Concomitant]
  4. FLUVOXAMINE [Concomitant]
  5. FLUDIAZEPAM [Concomitant]

REACTIONS (3)
  - CIRCULATORY COLLAPSE [None]
  - DRUG TOXICITY [None]
  - HAEMORRHAGIC DIATHESIS [None]
